FAERS Safety Report 16803724 (Version 1)
Quarter: 2019Q3

REPORT INFORMATION
  Report Type: Spontaneous
  Country: US (occurrence: US)
  Receive Date: 20190913
  Receipt Date: 20190913
  Transmission Date: 20191005
  Serious: No
  Sender: FDA-Public Use
  Company Number: US-ICU MEDICAL, INC.-ICU2018US00031

PATIENT
  Sex: Female

DRUGS (4)
  1. MORPHINE SULFATE INJECTION [Suspect]
     Active Substance: MORPHINE SULFATE
     Indication: BACK PAIN
     Dosage: UNK
     Route: 042
     Dates: start: 2017, end: 2017
  2. LYRICA [Suspect]
     Active Substance: PREGABALIN
     Indication: CENTRAL PAIN SYNDROME
     Dosage: 200 MILLIGRAM, TID
     Route: 048
     Dates: start: 20190320
  3. LYRICA [Suspect]
     Active Substance: PREGABALIN
     Indication: QUADRIPLEGIA
  4. LYRICA [Suspect]
     Active Substance: PREGABALIN
     Indication: NEURALGIA

REACTIONS (2)
  - Pruritus [Recovered/Resolved]
  - Drug hypersensitivity [Recovered/Resolved]

NARRATIVE: CASE EVENT DATE: 2017
